FAERS Safety Report 7012197-8 (Version None)
Quarter: 2010Q3

REPORT INFORMATION
  Report Type: 
  Country: None (occurrence: None)
  Receive Date: 20100924
  Receipt Date: 20100916
  Transmission Date: 20110219
  Serious: Yes (Other)
  Sender: FDA-Public Use
  Company Number: CA-EISAI INC.-E3810-03602-SPO-CA

PATIENT
  Age: 74 Year
  Sex: Male

DRUGS (2)
  1. PARIET (RABEPRAZOLE) [Suspect]
     Route: 048
  2. PARIET (RABEPRAZOLE) [Suspect]
     Dosage: UNKNOWN
     Route: 048

REACTIONS (4)
  - HAEMORRHAGE [None]
  - VITREOUS DETACHMENT [None]
  - VITREOUS FLOATERS [None]
  - WEIGHT INCREASED [None]
